FAERS Safety Report 8395638-3 (Version None)
Quarter: 2012Q2

REPORT INFORMATION
  Report Type: 
  Country: None (occurrence: None)
  Receive Date: 20120530
  Receipt Date: 20111228
  Transmission Date: 20120825
  Serious: No
  Sender: FDA-Public Use
  Company Number: US-GLAXOSMITHKLINE-A0959337A

PATIENT
  Age: 73 Year
  Sex: Male

DRUGS (4)
  1. VENTOLIN [Suspect]
     Indication: NASOPHARYNGITIS
     Route: 055
     Dates: start: 20080101
  2. BLOOD THINNER [Concomitant]
  3. HEART MEDICATION [Concomitant]
  4. DIABETES MEDICATION [Concomitant]

REACTIONS (2)
  - DRUG INEFFECTIVE [None]
  - PRODUCT QUALITY ISSUE [None]
